FAERS Safety Report 15914271 (Version 1)
Quarter: 2019Q1

REPORT INFORMATION
  Report Type: Spontaneous
  Country: US (occurrence: US)
  Receive Date: 20190204
  Receipt Date: 20190204
  Transmission Date: 20190417
  Serious: Yes (Hospitalization)
  Sender: FDA-Public Use
  Company Number: None

PATIENT
  Age: 36 Year
  Sex: Male
  Weight: 98 kg

DRUGS (1)
  1. GANCYCLOVIR 500 MG VIAL [Suspect]
     Active Substance: GANCICLOVIR
     Indication: POSTOPERATIVE CARE
     Route: 041

REACTIONS (2)
  - Anaphylactic reaction [None]
  - Infusion related reaction [None]

NARRATIVE: CASE EVENT DATE: 20190129
